FAERS Safety Report 5031962-X (Version None)
Quarter: 2006Q2

REPORT INFORMATION
  Report Type: 
  Country: None (occurrence: None)
  Receive Date: 20060619
  Receipt Date: 20060608
  Transmission Date: 20061013
  Serious: Yes (Death)
  Sender: FDA-Public Use
  Company Number: GB200605004670

PATIENT
  Age: 40 Year
  Sex: Male
  Weight: 101.2 kg

DRUGS (4)
  1. ZYPREXA [Suspect]
     Indication: PSYCHOTIC DISORDER
     Dosage: 20 MG, ORAL
     Route: 048
     Dates: start: 20040401
  2. FLUOXETINE HCL [Suspect]
     Indication: MAJOR DEPRESSION
     Dosage: 60 MG, ORAL
     Route: 048
     Dates: start: 20040401
  3. TEMAZEPAM [Concomitant]
  4. DIAZEPAM [Concomitant]

REACTIONS (6)
  - COUGH [None]
  - DEPRESSED LEVEL OF CONSCIOUSNESS [None]
  - DRUG LEVEL INCREASED [None]
  - RESPIRATORY DEPRESSION [None]
  - SNEEZING [None]
  - SUDDEN DEATH [None]
